APPROVED DRUG PRODUCT: ONDANSETRON HYDROCHLORIDE
Active Ingredient: ONDANSETRON HYDROCHLORIDE
Strength: EQ 2MG BASE/ML
Dosage Form/Route: INJECTABLE;INJECTION
Application: A204906 | Product #001
Applicant: RISING PHARMA HOLDING INC
Approved: Jul 31, 2017 | RLD: No | RS: No | Type: DISCN